FAERS Safety Report 21672846 (Version 1)
Quarter: 2022Q4

REPORT INFORMATION
  Report Type: Report from Study
  Country: BR (occurrence: BR)
  Receive Date: 20221202
  Receipt Date: 20221202
  Transmission Date: 20230113
  Serious: Yes (Other)
  Sender: FDA-Public Use
  Company Number: BR-JNJFOC-20221158753

PATIENT
  Sex: Male
  Weight: 52 kg

DRUGS (1)
  1. REMICADE [Suspect]
     Active Substance: INFLIXIMAB
     Indication: Ankylosing spondylitis
     Route: 041
     Dates: start: 2021

REACTIONS (8)
  - Upper limb fracture [Unknown]
  - Joint arthroplasty [Not Recovered/Not Resolved]
  - Device failure [Unknown]
  - Fall [Unknown]
  - Transurethral prostatectomy [Unknown]
  - Urinary tract infection [Unknown]
  - Weight decreased [Unknown]
  - Off label use [Unknown]

NARRATIVE: CASE EVENT DATE: 20210101
